FAERS Safety Report 4474506-3 (Version None)
Quarter: 2004Q4

REPORT INFORMATION
  Report Type: 
  Country: None (occurrence: None)
  Receive Date: 20041014
  Receipt Date: 20040913
  Transmission Date: 20050328
  Serious: Yes (Other)
  Sender: FDA-Public Use
  Company Number: PHNR2004AU01427

PATIENT
  Sex: Female

DRUGS (1)
  1. COMBIPATCH [Suspect]
     Dosage: TWICE WEEKLY

REACTIONS (2)
  - MALAISE [None]
  - METRORRHAGIA [None]
